FAERS Safety Report 19274063 (Version 3)
Quarter: 2021Q3

REPORT INFORMATION
  Report Type: Report from Study
  Country: US (occurrence: US)
  Receive Date: 20210519
  Receipt Date: 20210702
  Transmission Date: 20211014
  Serious: Yes (Hospitalization)
  Sender: FDA-Public Use
  Company Number: US-ROCHE-2827302

PATIENT
  Age: 25 Year
  Sex: Male
  Weight: 64.6 kg

DRUGS (10)
  1. FERROUS SULFATE. [Concomitant]
     Active Substance: FERROUS SULFATE
  2. PERTUZUMAB. [Suspect]
     Active Substance: PERTUZUMAB
     Indication: ADENOCARCINOMA OF COLON
     Dosage: LAST ADMINISTERED DATE: 25/MAR/2021
     Route: 065
  3. IRINOTECAN [Suspect]
     Active Substance: IRINOTECAN
     Indication: ADENOCARCINOMA OF COLON
     Dosage: LAST ADMINISTERED DATE: 10/MAR/2021
     Route: 042
     Dates: start: 20210210, end: 20210310
  4. COLACE [Concomitant]
     Active Substance: DOCUSATE SODIUM
  5. K?TAB [Concomitant]
     Active Substance: POTASSIUM CHLORIDE
  6. TRASTUZUMAB. [Suspect]
     Active Substance: TRASTUZUMAB
     Indication: ADENOCARCINOMA OF COLON
     Dosage: LAST ADMINISTERED DATE: 25/MAR/2021
     Route: 065
  7. CETUXIMAB. [Suspect]
     Active Substance: CETUXIMAB
     Indication: ADENOCARCINOMA OF COLON
     Dosage: LAST ADMINISTERED DATE: 10/MAR/2021
     Route: 042
     Dates: start: 20210210, end: 20210310
  8. CYMBALTA [Concomitant]
     Active Substance: DULOXETINE HYDROCHLORIDE
  9. NEURONTIN [Concomitant]
     Active Substance: GABAPENTIN
  10. NORCO [Concomitant]
     Active Substance: ACETAMINOPHEN\HYDROCODONE BITARTRATE

REACTIONS (1)
  - Stevens-Johnson syndrome [Recovered/Resolved]

NARRATIVE: CASE EVENT DATE: 20210403
